FAERS Safety Report 8489428-0 (Version None)
Quarter: 2012Q3

REPORT INFORMATION
  Report Type: 
  Country: None (occurrence: None)
  Receive Date: 20120705
  Receipt Date: 20120704
  Transmission Date: 20120928
  Serious: Yes (Hospitalization)
  Sender: FDA-Public Use
  Company Number: DE-BAYER-2012-066476

PATIENT
  Age: 22 Month
  Sex: Male
  Weight: 11.791 kg

DRUGS (1)
  1. MAGNEVIST [Suspect]
     Indication: IMAGING PROCEDURE
     Dosage: 5 ML, 1:200
     Route: 037
     Dates: start: 20120112, end: 20120112

REACTIONS (2)
  - HYPERREFLEXIA [None]
  - MUSCULAR WEAKNESS [None]
